FAERS Safety Report 10245055 (Version 2)
Quarter: 2014Q3

REPORT INFORMATION
  Report Type: Spontaneous
  Country: IT (occurrence: None)
  Receive Date: 20140616
  Receipt Date: 20140725
  Transmission Date: 20150326
  Serious: Yes (Other)
  Sender: FDA-Public Use
  Company Number: AUR-APL-2014-06403

PATIENT
  Age: 93 Year
  Sex: Female

DRUGS (6)
  1. LASIX [Concomitant]
     Active Substance: FUROSEMIDE
  2. EUTIROX (LEVOTHYROXINE SODIUM) TABLET [Concomitant]
  3. ALLOPURINOL (ALLOPURINOL) TABLET [Concomitant]
     Active Substance: ALLOPURINOL
  4. OMEPRAZEN /00661201/ (OMEPRAZOLE) CAPSULE [Concomitant]
  5. REPAGLINIDE. [Suspect]
     Active Substance: REPAGLINIDE
     Route: 048
     Dates: start: 20130101, end: 20140109
  6. METFORMIN [Suspect]
     Active Substance: METFORMIN HYDROCHLORIDE
     Indication: DIABETES MELLITUS
     Route: 048
     Dates: start: 20140101, end: 20140109

REACTIONS (2)
  - Coma [None]
  - Hypoglycaemia [None]

NARRATIVE: CASE EVENT DATE: 20140109
